FAERS Safety Report 7110740-1 (Version None)
Quarter: 2010Q4

REPORT INFORMATION
  Report Type: 
  Country: None (occurrence: None)
  Receive Date: 20101118
  Receipt Date: 20101105
  Transmission Date: 20110411
  Serious: No
  Sender: FDA-Public Use
  Company Number: B0574285A

PATIENT
  Sex: Male
  Weight: 3 kg

DRUGS (6)
  1. PAXIL [Suspect]
     Indication: PANIC DISORDER
  2. MEILAX [Suspect]
  3. DEPAS [Suspect]
  4. SOLANAX [Suspect]
  5. UTEMERIN [Suspect]
  6. RHYTHMY [Suspect]

REACTIONS (9)
  - CONVULSION NEONATAL [None]
  - DRUG EXPOSURE DURING PREGNANCY [None]
  - DRUG WITHDRAWAL SYNDROME NEONATAL [None]
  - MATERNAL DRUGS AFFECTING FOETUS [None]
  - NEONATAL ASPHYXIA [None]
  - SOMNOLENCE NEONATAL [None]
  - TRANSIENT TACHYPNOEA OF THE NEWBORN [None]
  - TREMOR [None]
  - TREMOR NEONATAL [None]
